FAERS Safety Report 5571074-X (Version None)
Quarter: 2007Q4

REPORT INFORMATION
  Report Type: 
  Country: None (occurrence: None)
  Receive Date: 20071221
  Receipt Date: 20071214
  Transmission Date: 20080405
  Serious: Yes (Other)
  Sender: FDA-Public Use
  Company Number: CN-ASTRAZENECA-2007AP07906

PATIENT
  Age: 45 Year
  Sex: Male

DRUGS (2)
  1. IRESSA [Suspect]
     Indication: BRONCHIOLOALVEOLAR CARCINOMA
     Route: 048
     Dates: start: 20070228, end: 20070416
  2. IRESSA [Suspect]
     Route: 048

REACTIONS (4)
  - CYSTITIS HAEMORRHAGIC [None]
  - DRY SKIN [None]
  - PRURITUS [None]
  - RASH PAPULAR [None]
